FAERS Safety Report 9382139 (Version 1)
Quarter: 2013Q3

REPORT INFORMATION
  Report Type: Spontaneous
  Country: GB (occurrence: GB)
  Receive Date: 20130703
  Receipt Date: 20130703
  Transmission Date: 20140515
  Serious: Yes (Hospitalization)
  Sender: FDA-Public Use
  Company Number: GB-AMGEN-GBRSP2013045551

PATIENT
  Age: 59 Year
  Sex: Female

DRUGS (10)
  1. PROLIA [Suspect]
     Indication: OSTEOPOROSIS
     Dosage: 60 MG, UNK
     Route: 058
     Dates: start: 20121221, end: 20121221
  2. AMITRIPTYLINE [Concomitant]
  3. ARAVA [Concomitant]
  4. CALCICHEW D3 [Concomitant]
  5. CHLORPHENIRAMINE                   /00072501/ [Concomitant]
  6. FEXOFENADINE [Concomitant]
  7. LEVOTHYROXINE [Concomitant]
  8. OMEPRAZOLE [Concomitant]
  9. OXYCONTIN [Concomitant]
  10. SIMVASTATIN [Concomitant]

REACTIONS (3)
  - Periostitis [Unknown]
  - Atypical femur fracture [Not Recovered/Not Resolved]
  - Pain in extremity [Unknown]
